FAERS Safety Report 9201084 (Version 2)
Quarter: 2013Q2

REPORT INFORMATION
  Report Type: Spontaneous
  Country: US (occurrence: US)
  Receive Date: 20130401
  Receipt Date: 20130506
  Transmission Date: 20140414
  Serious: No
  Sender: FDA-Public Use
  Company Number: US-PFIZER INC-2013099480

PATIENT
  Age: 74 Year
  Sex: Female
  Weight: 72.56 kg

DRUGS (3)
  1. NEURONTIN [Suspect]
     Indication: NEURALGIA
     Dosage: 300 MG, 3X/DAY
     Route: 048
     Dates: start: 20130228, end: 20130312
  2. NEURONTIN [Suspect]
     Indication: SCIATICA
  3. POTASSIUM [Concomitant]
     Dosage: UNK

REACTIONS (3)
  - Tremor [Unknown]
  - Ecchymosis [Unknown]
  - Muscle spasms [Recovered/Resolved]
